FAERS Safety Report 7902673-5 (Version None)
Quarter: 2011Q4

REPORT INFORMATION
  Report Type: 
  Country: None (occurrence: None)
  Receive Date: 20111108
  Receipt Date: 20111104
  Transmission Date: 20120403
  Serious: Yes (Death)
  Sender: FDA-Public Use
  Company Number: TW-MERCK-1111USA00563

PATIENT
  Age: 56 Year
  Sex: Male

DRUGS (12)
  1. NORVASC [Concomitant]
     Route: 048
     Dates: start: 20110721, end: 20110726
  2. ACTOS [Concomitant]
     Route: 048
     Dates: start: 20110401, end: 20110726
  3. ISMO [Concomitant]
     Route: 048
     Dates: start: 20101220, end: 20110726
  4. JANUVIA [Suspect]
     Indication: TYPE 2 DIABETES MELLITUS
     Route: 048
     Dates: start: 20100107, end: 20110721
  5. GASCON [Concomitant]
     Route: 048
     Dates: start: 20110721, end: 20110726
  6. AMARYL [Concomitant]
     Route: 048
     Dates: start: 20110107, end: 20110726
  7. LIPITOR [Concomitant]
     Route: 048
     Dates: start: 20110412, end: 20110726
  8. GLUCOBAY [Concomitant]
     Route: 048
     Dates: start: 20100107, end: 20110726
  9. TRANDATE [Concomitant]
     Route: 048
     Dates: start: 20110107, end: 20110726
  10. ALUMINUM HYDROXIDE AND MAGNESIUM TRISILICATE [Concomitant]
     Route: 048
     Dates: start: 20110721, end: 20110726
  11. ULTRACET [Concomitant]
     Dosage: 1 # DAILY
     Route: 048
     Dates: start: 20110721, end: 20110726
  12. LOPEDIN [Concomitant]
     Route: 048
     Dates: start: 20110721, end: 20110726

REACTIONS (1)
  - DEATH [None]
